FAERS Safety Report 25774936 (Version 1)
Quarter: 2025Q3

REPORT INFORMATION
  Report Type: Spontaneous
  Country: US (occurrence: US)
  Receive Date: 20250908
  Receipt Date: 20250908
  Transmission Date: 20251021
  Serious: No
  Sender: BAYER HEALTHCARE PHARMACEUTICALS INC.
  Company Number: US-BAYER-2025A115410

PATIENT
  Age: 79 Year
  Sex: Male

DRUGS (2)
  1. NUBEQA [Suspect]
     Active Substance: DAROLUTAMIDE
     Indication: Prostate cancer
     Dosage: 300 MG, BID
     Dates: start: 2024
  2. NUBEQA [Suspect]
     Active Substance: DAROLUTAMIDE
     Indication: Prostate cancer
     Dates: start: 20250819

REACTIONS (5)
  - Prostatic specific antigen increased [None]
  - Product use issue [None]
  - Fatigue [Not Recovered/Not Resolved]
  - Lethargy [None]
  - Dehydration [None]
